FAERS Safety Report 20287539 (Version 2)
Quarter: 2022Q1

REPORT INFORMATION
  Report Type: Spontaneous
  Country: IR (occurrence: IR)
  Receive Date: 20220103
  Receipt Date: 20220110
  Transmission Date: 20220424
  Serious: Yes (Hospitalization, Other)
  Sender: FDA-Public Use
  Company Number: IR-Accord-248427

PATIENT
  Age: 66 Year
  Sex: Male

DRUGS (2)
  1. MYCOPHENOLATE MOFETIL [Suspect]
     Active Substance: MYCOPHENOLATE MOFETIL
     Indication: Glomerulonephropathy
     Dosage: 1500 MG/DAY
  2. PREDNISOLONE [Concomitant]
     Active Substance: PREDNISOLONE
     Indication: Glomerulonephropathy
     Dosage: DOSE REDUCED TO 45 MG FROM 60 MG

REACTIONS (6)
  - Peripheral sensory neuropathy [Recovered/Resolved]
  - Fall [Unknown]
  - Functional gastrointestinal disorder [Recovered/Resolved]
  - Bladder dysfunction [Recovered/Resolved]
  - Peripheral motor neuropathy [Recovered/Resolved]
  - Neurotoxicity [Recovered/Resolved]
